FAERS Safety Report 8143719-1 (Version None)
Quarter: 2012Q1

REPORT INFORMATION
  Report Type: 
  Country: None (occurrence: None)
  Receive Date: 20120217
  Receipt Date: 20120208
  Transmission Date: 20120608
  Serious: Yes (Other)
  Sender: FDA-Public Use
  Company Number: JP-ASTELLAS-2012JP001307

PATIENT
  Age: 74 Year
  Sex: Female

DRUGS (1)
  1. FUNGUARD [Suspect]
     Indication: EYE INFECTION FUNGAL
     Dosage: 200 MG, UNKNOWN/D
     Route: 042

REACTIONS (4)
  - ORAL FUNGAL INFECTION [None]
  - CANDIDA ENDOPHTHALMITIS [None]
  - FUNGAL OESOPHAGITIS [None]
  - DRUG INEFFECTIVE [None]
